FAERS Safety Report 23634298 (Version 1)
Quarter: 2024Q1

REPORT INFORMATION
  Report Type: Spontaneous
  Country: US (occurrence: US)
  Receive Date: 20240314
  Receipt Date: 20240314
  Transmission Date: 20240410
  Serious: No
  Sender: FDA-Public Use
  Company Number: US-TEVA-VS-3156946

PATIENT
  Sex: Male

DRUGS (1)
  1. UZEDY [Suspect]
     Active Substance: RISPERIDONE
     Dosage: 100/0.28 MG/ML
     Route: 065

REACTIONS (3)
  - Psychotic disorder [Unknown]
  - Drug ineffective [Unknown]
  - Paranoia [Unknown]
